FAERS Safety Report 4660518-3 (Version None)
Quarter: 2005Q2

REPORT INFORMATION
  Report Type: 
  Country: None (occurrence: None)
  Receive Date: 20050511
  Receipt Date: 20050511
  Transmission Date: 20051028
  Serious: No
  Sender: FDA-Public Use
  Company Number: None

PATIENT
  Age: 91 Year
  Sex: Male
  Weight: 63.5036 kg

DRUGS (1)
  1. ALDARA [Suspect]
     Indication: HYPERKERATOSIS
     Dosage: 2 CYCLES 4 WKS ON WKS OFF
     Dates: start: 20050110, end: 20050411

REACTIONS (2)
  - DIARRHOEA [None]
  - DRUG TOXICITY [None]
